FAERS Safety Report 9969968 (Version 1)
Quarter: 2014Q1

REPORT INFORMATION
  Report Type: Spontaneous
  Country: US (occurrence: None)
  Receive Date: 20140131
  Receipt Date: 20140131
  Transmission Date: 20141002
  Serious: Yes (Hospitalization)
  Sender: FDA-Public Use
  Company Number: 073084

PATIENT
  Age: 50 Year
  Sex: Male

DRUGS (4)
  1. LEVETIRACETAM [Suspect]
     Route: 048
  2. GABAPENTIN [Concomitant]
  3. VALPROIC ACID [Concomitant]
  4. ESOMEPRAZOLE [Concomitant]

REACTIONS (2)
  - Substance-induced psychotic disorder [None]
  - Incorrect dose administered [None]
